FAERS Safety Report 5213744-9 (Version None)
Quarter: 2007Q1

REPORT INFORMATION
  Report Type: 
  Country: None (occurrence: None)
  Receive Date: 20070119
  Receipt Date: 20061211
  Transmission Date: 20070707
  Serious: Yes (Hospitalization, Other)
  Sender: FDA-Public Use
  Company Number: US-PFIZER INC-2007002388

PATIENT
  Sex: Male
  Weight: 74.8 kg

DRUGS (1)
  1. CELEBREX [Suspect]
     Indication: ARTHRITIS

REACTIONS (3)
  - CEREBRAL INFARCTION [None]
  - DYSPHASIA [None]
  - VISUAL ACUITY REDUCED [None]
